FAERS Safety Report 9258187 (Version 1)
Quarter: 2013Q2

REPORT INFORMATION
  Report Type: Spontaneous
  Country: NL (occurrence: NL)
  Receive Date: 20130426
  Receipt Date: 20130426
  Transmission Date: 20140414
  Serious: Yes (Death)
  Sender: FDA-Public Use
  Company Number: NL-NOVOPROD-375871

PATIENT
  Age: 63 Year
  Sex: Male
  Weight: 110 kg

DRUGS (9)
  1. VICTOZA [Suspect]
     Indication: TYPE 2 DIABETES MELLITUS
     Dosage: DOSE UNKNOWN
     Route: 058
     Dates: start: 20130301
  2. LOSARTAN [Concomitant]
     Route: 048
  3. GLIMEPIRIDE [Concomitant]
     Route: 048
  4. NITROLINGUAL-SPRAY [Concomitant]
  5. ACENOCOUMAROL [Concomitant]
  6. RANITIDINE [Concomitant]
  7. ATORVASTATIN [Concomitant]
  8. METFORMIN [Concomitant]
  9. ARTIFICIAL TEARS                   /00445101/ [Concomitant]

REACTIONS (2)
  - Ventricular fibrillation [Fatal]
  - Myocardial infarction [Fatal]
